FAERS Safety Report 14776422 (Version 1)
Quarter: 2018Q2

REPORT INFORMATION
  Report Type: Spontaneous
  Country: US (occurrence: US)
  Receive Date: 20180418
  Receipt Date: 20180418
  Transmission Date: 20180711
  Serious: No
  Sender: FDA-Public Use
  Company Number: US-SA-2017SA119536

PATIENT
  Age: 26 Year
  Sex: Female

DRUGS (9)
  1. CAPRELSA [Suspect]
     Active Substance: VANDETANIB
     Indication: THYROID CANCER
     Route: 065
     Dates: start: 20161130
  2. CABOZANTINIB [Suspect]
     Active Substance: CABOZANTINIB
     Indication: THYROID CANCER
     Route: 048
     Dates: start: 20151201, end: 20151220
  3. SYNTHROID [Concomitant]
     Active Substance: LEVOTHYROXINE SODIUM
  4. CABOZANTINIB [Suspect]
     Active Substance: CABOZANTINIB
     Indication: THYROID CANCER
     Route: 048
     Dates: start: 20160122, end: 201606
  5. CABOZANTINIB [Suspect]
     Active Substance: CABOZANTINIB
     Indication: THYROID CANCER
     Route: 048
     Dates: start: 20160622, end: 20160713
  6. CABOZANTINIB [Suspect]
     Active Substance: CABOZANTINIB
     Indication: THYROID CANCER
     Route: 048
     Dates: start: 20160716, end: 20160731
  7. LUTERA [Concomitant]
     Active Substance: ETHINYL ESTRADIOL\LEVONORGESTREL
  8. CABOZANTINIB [Suspect]
     Active Substance: CABOZANTINIB
     Indication: THYROID CANCER
     Route: 048
     Dates: start: 20151228, end: 20160106
  9. CABOZANTINIB [Suspect]
     Active Substance: CABOZANTINIB
     Indication: THYROID CANCER
     Route: 048
     Dates: start: 20160806, end: 20161123

REACTIONS (7)
  - Miosis [Unknown]
  - Hepatic enzyme increased [Not Recovered/Not Resolved]
  - Eyelid ptosis [Unknown]
  - Impaired healing [Unknown]
  - Blood thyroid stimulating hormone increased [Unknown]
  - Acne [Unknown]
  - Blood calcitonin increased [Recovering/Resolving]

NARRATIVE: CASE EVENT DATE: 20170221
